FAERS Safety Report 9369291 (Version 1)
Quarter: 2013Q2

REPORT INFORMATION
  Report Type: Spontaneous
  Country: US (occurrence: US)
  Receive Date: 20130626
  Receipt Date: 20130626
  Transmission Date: 20140414
  Serious: Yes (Other)
  Sender: FDA-Public Use
  Company Number: PHEH2013US013579

PATIENT
  Sex: Female

DRUGS (1)
  1. EXELON PATCH [Suspect]
     Dosage: 9.5 MG (PATCH 10CM2), QD
     Route: 062

REACTIONS (4)
  - Chest discomfort [Unknown]
  - Confusional state [Unknown]
  - Condition aggravated [Unknown]
  - Wrong technique in drug usage process [Unknown]
